FAERS Safety Report 8131968-8 (Version None)
Quarter: 2012Q1

REPORT INFORMATION
  Report Type: 
  Country: None (occurrence: None)
  Receive Date: 20120208
  Receipt Date: 20120123
  Transmission Date: 20120608
  Serious: Yes (Hospitalization, Other)
  Sender: FDA-Public Use
  Company Number: 2011MA001719

PATIENT
  Sex: Female
  Weight: 183.7068 kg

DRUGS (33)
  1. AVAPRO [Concomitant]
  2. GUAIFEN PSE [Concomitant]
  3. CITALOPRAM HYDROBROMIDE [Concomitant]
  4. ATIVAN [Concomitant]
  5. METOCLOPRAMIDE [Suspect]
     Dosage: 10 MG;QID;PO
     Route: 048
     Dates: start: 20020301, end: 20080608
  6. CEPHALEXIN [Concomitant]
  7. ROCEPHIN [Concomitant]
  8. OXYCODONE HCL AND ACETAMINOPHEN [Concomitant]
  9. RANITIDINE [Concomitant]
  10. FUROSEMIDE [Concomitant]
  11. ATROPINE [Concomitant]
  12. KLOR-CON [Concomitant]
  13. APAP TAB [Concomitant]
  14. AVANDIA [Concomitant]
  15. ACTOS [Concomitant]
  16. GLIPIZIDE [Concomitant]
  17. BENICAR [Concomitant]
  18. BENADRYL [Concomitant]
  19. SYNTHROID [Concomitant]
  20. MACROBID [Concomitant]
  21. CIPROFLOXACIN HCL [Concomitant]
  22. PROMETHAZINE [Concomitant]
  23. FLUOXETINE [Concomitant]
  24. LOPERAMIDE HCL [Concomitant]
  25. ALPRAZOLAM [Concomitant]
  26. COGENTIN [Concomitant]
  27. IRON [Concomitant]
  28. NEXIUM [Concomitant]
  29. LONOX [Concomitant]
  30. HYDROCODONE BITARTRATE [Concomitant]
  31. BIAXIN [Concomitant]
  32. INSULIN [Concomitant]
  33. DIPHENHYDRAMINE HCL [Concomitant]

REACTIONS (24)
  - ECONOMIC PROBLEM [None]
  - ANXIETY [None]
  - MASTOIDITIS [None]
  - EMOTIONAL DISORDER [None]
  - BLOOD PRESSURE INADEQUATELY CONTROLLED [None]
  - URINARY TRACT INFECTION [None]
  - MENINGIOMA [None]
  - MYALGIA [None]
  - TREMOR [None]
  - TOOTH FRACTURE [None]
  - MOVEMENT DISORDER [None]
  - SINUSITIS [None]
  - TREATMENT NONCOMPLIANCE [None]
  - SEPSIS [None]
  - DEVICE OCCLUSION [None]
  - EXTRAPYRAMIDAL DISORDER [None]
  - DEPRESSION [None]
  - PAIN [None]
  - RESPIRATORY DISORDER [None]
  - DYSTONIA [None]
  - TARDIVE DYSKINESIA [None]
  - DIABETES MELLITUS INADEQUATE CONTROL [None]
  - TOOTH ABSCESS [None]
  - DIARRHOEA [None]
